FAERS Safety Report 5408881-X (Version None)
Quarter: 2007Q3

REPORT INFORMATION
  Report Type: 
  Country: None (occurrence: None)
  Receive Date: 20070808
  Receipt Date: 20070806
  Transmission Date: 20080115
  Serious: Yes (Other)
  Sender: FDA-Public Use
  Company Number: JP-ROXANE LABORATORIES, INC-2007-BP-18593RO

PATIENT
  Age: 59 Year
  Sex: Female

DRUGS (6)
  1. DEXAMETHASONE 0.5MG TAB [Suspect]
     Indication: VOMITING
  2. METHOTREXATE SODIUM [Suspect]
     Indication: BLADDER CANCER
  3. EPIADRIAMYCIN [Suspect]
     Indication: BLADDER CANCER
  4. CISPLATIN [Suspect]
     Indication: BLADDER CANCER
  5. LAMIVUDINE [Suspect]
  6. STEROID [Suspect]

REACTIONS (5)
  - ALANINE AMINOTRANSFERASE INCREASED [None]
  - ANOREXIA [None]
  - FATIGUE [None]
  - HEPATITIS B [None]
  - REVERSIBLE POSTERIOR LEUKOENCEPHALOPATHY SYNDROME [None]
